FAERS Safety Report 10898800 (Version 2)
Quarter: 2015Q1

REPORT INFORMATION
  Report Type: Spontaneous
  Country: JP (occurrence: JP)
  Receive Date: 20150309
  Receipt Date: 20150312
  Transmission Date: 20150721
  Serious: No
  Sender: FDA-Public Use
  Company Number: JP-009507513-1502JPN011358

PATIENT
  Age: 33 Year
  Sex: Female
  Weight: 51 kg

DRUGS (7)
  1. THIAMYLAL SODIUM [Concomitant]
     Active Substance: THIAMYLAL SODIUM
     Dosage: 250 MG, QD, DIVIDED DOSE FREQUENCY UNKNOWN
     Route: 051
  2. FENTANYL. [Concomitant]
     Active Substance: FENTANYL
     Indication: ANAESTHESIA PROCEDURE
     Dosage: 200 MICROGRAM, QD
     Route: 065
  3. ULTIVA [Concomitant]
     Active Substance: REMIFENTANIL HYDROCHLORIDE
     Indication: ANAESTHESIA PROCEDURE
     Dosage: 0.25MCG/KG/MIN, DAILY DOSE UNKNOWN
     Route: 042
  4. ESLAX [Suspect]
     Active Substance: ROCURONIUM BROMIDE
     Dosage: 50 MG, QD, DIVIDED DOSE FREQUENCY UNKNOWN
     Route: 042
  5. THIAMYLAL SODIUM [Concomitant]
     Active Substance: THIAMYLAL SODIUM
     Dosage: 200 MG, QD, DIVIDED DOSE FREQUENCY UNKNOWN
     Route: 051
  6. SEVOFLURANE. [Concomitant]
     Active Substance: SEVOFLURANE
     Indication: ANAESTHESIA PROCEDURE
     Dosage: DAILY DOSE UNKNOWN
     Route: 055
  7. ESLAX [Suspect]
     Active Substance: ROCURONIUM BROMIDE
     Indication: NEUROMUSCULAR BLOCKING THERAPY
     Dosage: 50 MG, QD, DIVIDED DOSE FREQUENCY UNKNOWN
     Route: 042

REACTIONS (1)
  - Maternal exposure during pregnancy [Recovered/Resolved]
